FAERS Safety Report 16473768 (Version 1)
Quarter: 2019Q2

REPORT INFORMATION
  Report Type: Spontaneous
  Country: DE (occurrence: DE)
  Receive Date: 20190625
  Receipt Date: 20190625
  Transmission Date: 20190711
  Serious: Yes (Other)
  Sender: FDA-Public Use
  Company Number: DE-BAYER-2019-117631

PATIENT
  Age: 35 Year
  Sex: Female
  Weight: 61 kg

DRUGS (1)
  1. CIPROFLOXACIN. [Suspect]
     Active Substance: CIPROFLOXACIN
     Dosage: 500 MG, BID
     Route: 048
     Dates: start: 20190506, end: 20190508

REACTIONS (11)
  - Tendon pain [Not Recovered/Not Resolved]
  - Dizziness [Recovering/Resolving]
  - Gait disturbance [Not Recovered/Not Resolved]
  - Arrhythmia [Recovering/Resolving]
  - Somnolence [Recovering/Resolving]
  - Hypoaesthesia [Recovering/Resolving]
  - Headache [Recovering/Resolving]
  - Tinnitus [Not Recovered/Not Resolved]
  - Paraesthesia [Recovering/Resolving]
  - Joint swelling [Not Recovered/Not Resolved]
  - Pain in extremity [Recovering/Resolving]

NARRATIVE: CASE EVENT DATE: 20190507
